FAERS Safety Report 4365222-7 (Version None)
Quarter: 2004Q2

REPORT INFORMATION
  Report Type: 
  Country: None (occurrence: None)
  Receive Date: 20040525
  Receipt Date: 20040325
  Transmission Date: 20050107
  Serious: No
  Sender: FDA-Public Use
  Company Number: PHEH2004US03438

PATIENT
  Age: 46 Year
  Sex: Male

DRUGS (3)
  1. ZELNORM [Suspect]
     Indication: CONSTIPATION
     Dosage: 6 MG, BID, ORAL
     Route: 048
     Dates: start: 20040316
  2. NEXIUM /UNK/ (ESOMEPRAZOLE) [Concomitant]
  3. NIASPAN [Concomitant]

REACTIONS (3)
  - BACK PAIN [None]
  - BURNING SENSATION [None]
  - FEELING ABNORMAL [None]
